FAERS Safety Report 6052075-4 (Version None)
Quarter: 2009Q1

REPORT INFORMATION
  Report Type: 
  Country: None (occurrence: None)
  Receive Date: 20090126
  Receipt Date: 20090119
  Transmission Date: 20090719
  Serious: Yes (Other)
  Sender: FDA-Public Use
  Company Number: JP-ROXANE LABORATORIES, INC.-2009-RO-00081RO

PATIENT
  Age: 74 Year
  Sex: Male

DRUGS (3)
  1. AMLODIPINE [Suspect]
     Indication: HYPERTENSION
     Dosage: 5MG
  2. NAFTOPIDIL [Suspect]
     Indication: HYPERTENSION
     Dosage: 50MG
  3. INTERFERON GAMMA [Concomitant]
     Route: 030

REACTIONS (2)
  - DRUG ERUPTION [None]
  - PSEUDOLYMPHOMA [None]
